FAERS Safety Report 13115046 (Version 1)
Quarter: 2017Q1

REPORT INFORMATION
  Report Type: Spontaneous
  Country: CA (occurrence: CA)
  Receive Date: 20170113
  Receipt Date: 20170113
  Transmission Date: 20170428
  Serious: Yes (Other)
  Sender: FDA-Public Use
  Company Number: CA-PFIZER INC-2016236447

PATIENT
  Age: 51 Year
  Sex: Female

DRUGS (9)
  1. ENBREL [Suspect]
     Active Substance: ETANERCEPT
     Dosage: 50 MG, QWK
     Route: 058
  2. NEXIUM [Suspect]
     Active Substance: ESOMEPRAZOLE MAGNESIUM
     Dosage: UNK
  3. PREDNISONE. [Suspect]
     Active Substance: PREDNISONE
     Dosage: UNK
  4. SULFASALAZINE. [Concomitant]
     Active Substance: SULFASALAZINE
     Dosage: UNK
  5. DIOVAN [Concomitant]
     Active Substance: VALSARTAN
     Dosage: UNK
  6. PLAQUENIL /00072602/ [Concomitant]
     Active Substance: HYDROXYCHLOROQUINE DIPHOSPHATE
     Dosage: UNK
  7. METHOTREXATE SODIUM. [Suspect]
     Active Substance: METHOTREXATE SODIUM
     Dosage: UNK
  8. FOLIC ACID. [Concomitant]
     Active Substance: FOLIC ACID
     Dosage: UNK
  9. PREDNISOLONE. [Suspect]
     Active Substance: PREDNISOLONE
     Dosage: UNK

REACTIONS (18)
  - Anxiety [Unknown]
  - Joint injury [Unknown]
  - Pain [Unknown]
  - Drug ineffective [Unknown]
  - Paraesthesia [Unknown]
  - Inflammation [Unknown]
  - Arthralgia [Unknown]
  - Fall [Unknown]
  - Abdominal pain upper [Unknown]
  - Joint swelling [Unknown]
  - Muscle strain [Unknown]
  - Neck pain [Unknown]
  - Pain in extremity [Unknown]
  - Rhinorrhoea [Unknown]
  - Arthritis [Unknown]
  - Headache [Unknown]
  - Nausea [Unknown]
  - Upper-airway cough syndrome [Unknown]
